FAERS Safety Report 13489473 (Version 2)
Quarter: 2017Q3

REPORT INFORMATION
  Report Type: Spontaneous
  Country: BR (occurrence: BR)
  Receive Date: 20170427
  Receipt Date: 20170921
  Transmission Date: 20171127
  Serious: Yes (Death, Other)
  Sender: FDA-Public Use
  Company Number: BR-ABBVIE-17P-020-1956443-00

PATIENT
  Sex: Male
  Weight: 53 kg

DRUGS (3)
  1. DEPAKENE [Suspect]
     Active Substance: VALPROIC ACID
     Indication: SEIZURE
     Route: 050
  2. DEPAKENE [Suspect]
     Active Substance: VALPROIC ACID
     Route: 065
  3. DEPAKENE [Suspect]
     Active Substance: VALPROIC ACID
     Route: 065
     Dates: start: 2013

REACTIONS (6)
  - Drug administered to patient of inappropriate age [Unknown]
  - Incorrect product formulation administered [Unknown]
  - Incorrect route of drug administration [Unknown]
  - Seizure [Recovered/Resolved]
  - Sepsis [Fatal]
  - Infection [Recovering/Resolving]

NARRATIVE: CASE EVENT DATE: 2017
